FAERS Safety Report 5786035-5 (Version None)
Quarter: 2008Q2

REPORT INFORMATION
  Report Type: 
  Country: None (occurrence: None)
  Receive Date: 20080620
  Receipt Date: 20080620
  Transmission Date: 20081010
  Serious: No
  Sender: FDA-Public Use
  Company Number: None

PATIENT
  Age: 50 Year
  Sex: Female
  Weight: 54.4316 kg

DRUGS (1)
  1. CYCLOGYL [Suspect]

REACTIONS (14)
  - ANXIETY [None]
  - BRADYCARDIA [None]
  - CONFUSIONAL STATE [None]
  - DISORIENTATION [None]
  - DRUG EFFECT INCREASED [None]
  - DRY MOUTH [None]
  - DYSARTHRIA [None]
  - DYSPHAGIA [None]
  - ERYTHEMA [None]
  - GAIT DISTURBANCE [None]
  - INCORRECT DOSE ADMINISTERED [None]
  - MYDRIASIS [None]
  - PRESYNCOPE [None]
  - VISION BLURRED [None]
